FAERS Safety Report 10818392 (Version 3)
Quarter: 2015Q3

REPORT INFORMATION
  Report Type: Spontaneous
  Country: CA (occurrence: CA)
  Receive Date: 20150218
  Receipt Date: 20150928
  Transmission Date: 20151125
  Serious: Yes (Hospitalization)
  Sender: FDA-Public Use
  Company Number: CA-GSKJP-KK201405705GSK1550188SC003

PATIENT
  Sex: Female
  Weight: 68 kg

DRUGS (5)
  1. BENLYSTA [Suspect]
     Active Substance: BELIMUMAB
     Indication: SYSTEMIC LUPUS ERYTHEMATOSUS
     Dosage: EVERY 2 WEEKS FOR THE FIRST 3 INFUSIONS, THAN EVERY 4 WEEKS
     Route: 042
     Dates: start: 20120301
  2. BENLYSTA [Suspect]
     Active Substance: BELIMUMAB
     Dosage: EVERY 2 WEEKS FOR THE FIRST 3 INFUSIONS, THAN EVERY 4 WEEKS
     Route: 042
     Dates: start: 20120301
  3. BENLYSTA [Suspect]
     Active Substance: BELIMUMAB
     Dosage: 630 MG, Q4
  4. CHLOROQUINE [Concomitant]
     Active Substance: CHLOROQUINE\CHLOROQUINE PHOSPHATE
     Indication: PRODUCT USED FOR UNKNOWN INDICATION
     Dosage: UNK
  5. METHOTREXATE [Concomitant]
     Active Substance: METHOTREXATE
     Indication: PRODUCT USED FOR UNKNOWN INDICATION
     Dosage: UNK

REACTIONS (5)
  - Weight increased [Unknown]
  - Wound [Unknown]
  - Adverse event [Recovered/Resolved]
  - Weight decreased [Unknown]
  - Underdose [Unknown]
